FAERS Safety Report 11127648 (Version 2)
Quarter: 2015Q3

REPORT INFORMATION
  Report Type: Spontaneous
  Country: US (occurrence: US)
  Receive Date: 20150521
  Receipt Date: 20150731
  Transmission Date: 20151125
  Serious: Yes (Hospitalization)
  Sender: FDA-Public Use
  Company Number: US-BAYER-2015-229714

PATIENT
  Age: 25 Year
  Sex: Female
  Weight: 81.63 kg

DRUGS (1)
  1. MIRENA [Suspect]
     Active Substance: LEVONORGESTREL
     Indication: CONTRACEPTION
     Dosage: 20 MCG/24HR, CONT
     Route: 015
     Dates: start: 20120112, end: 20130528

REACTIONS (16)
  - Uterine perforation [None]
  - Back pain [None]
  - Weight fluctuation [None]
  - Depression [None]
  - Psychogenic pain disorder [None]
  - Device issue [None]
  - Post procedural discomfort [None]
  - Pelvic pain [None]
  - Medical device complication [None]
  - Device dislocation [None]
  - Injury [None]
  - Anxiety [None]
  - Dyspareunia [None]
  - Abdominal pain lower [None]
  - Crying [None]
  - Insomnia [None]

NARRATIVE: CASE EVENT DATE: 20120112
